FAERS Safety Report 23757079 (Version 2)
Quarter: 2024Q3

REPORT INFORMATION
  Report Type: Spontaneous
  Country: US (occurrence: US)
  Receive Date: 20240418
  Receipt Date: 20240701
  Transmission Date: 20241016
  Serious: No
  Sender: PFIZER
  Company Number: US-PFIZER INC-202300272017

PATIENT
  Age: 62 Year
  Sex: Male
  Weight: 88.45 kg

DRUGS (6)
  1. OXBRYTA [Suspect]
     Active Substance: VOXELOTOR
     Indication: Sickle cell anaemia
     Dosage: 500MG TAKING ONE MIDDAY AND TWO AT NIGHT
  2. OXBRYTA [Suspect]
     Active Substance: VOXELOTOR
     Dosage: 1500 MG, 1X/DAY
     Route: 048
  3. OXBRYTA [Suspect]
     Active Substance: VOXELOTOR
     Dosage: UNK
  4. OXBRYTA [Suspect]
     Active Substance: VOXELOTOR
     Dosage: 1500 MG, 1X/DAY
     Route: 048
  5. OXBRYTA [Suspect]
     Active Substance: VOXELOTOR
     Dosage: 500 MG, 2X/DAY
  6. HYDROXYUREA [Concomitant]
     Active Substance: HYDROXYUREA
     Dosage: TAKES 2 OF THOSE IN THE MORNING AND ONE MIDDAY

REACTIONS (3)
  - Blood iron increased [Not Recovered/Not Resolved]
  - Off label use [Unknown]
  - Off label use [Unknown]
